FAERS Safety Report 24112341 (Version 1)
Quarter: 2024Q3

REPORT INFORMATION
  Report Type: Spontaneous
  Country: GB (occurrence: None)
  Receive Date: 20240719
  Receipt Date: 20240719
  Transmission Date: 20241017
  Serious: Yes (Other)
  Sender: ASTRAZENECA
  Company Number: 2024A159908

PATIENT
  Sex: Female

DRUGS (3)
  1. BENRALIZUMAB [Suspect]
     Active Substance: BENRALIZUMAB
     Dosage: 30MG. DOSE 1
     Dates: start: 20230412
  2. BENRALIZUMAB [Suspect]
     Active Substance: BENRALIZUMAB
     Dosage: DOSE 2
     Dates: start: 2023
  3. BENRALIZUMAB [Suspect]
     Active Substance: BENRALIZUMAB
     Dosage: DOSE 3
     Dates: start: 20230607

REACTIONS (11)
  - Arthralgia [Unknown]
  - Arthralgia [Unknown]
  - Urticaria [Recovered/Resolved]
  - Erythema [Unknown]
  - Balance disorder [Unknown]
  - Dermatitis [Unknown]
  - Peripheral swelling [Unknown]
  - Fatigue [Unknown]
  - Malaise [Unknown]
  - Peripheral swelling [Unknown]
  - Pain in extremity [Unknown]

NARRATIVE: CASE EVENT DATE: 20230101
